FAERS Safety Report 4411788-8 (Version None)
Quarter: 2004Q3

REPORT INFORMATION
  Report Type: 
  Country: None (occurrence: None)
  Receive Date: 20040730
  Receipt Date: 20040723
  Transmission Date: 20050211
  Serious: Yes (Hospitalization)
  Sender: FDA-Public Use
  Company Number: 200415575US

PATIENT
  Sex: Male

DRUGS (4)
  1. AMARYL [Suspect]
     Indication: DIABETES MELLITUS NON-INSULIN-DEPENDENT
     Dosage: DOSE: NOT PROVIDED
     Route: 048
     Dates: start: 20040101, end: 20040723
  2. TOPROL-XL [Concomitant]
     Dosage: DOSE: NOT PROVIDED
  3. TARKA [Concomitant]
     Dosage: DOSE: NOT PROVIDED
  4. LIPITOR [Concomitant]
     Dosage: DOSE: NOT PROVIDED

REACTIONS (2)
  - BLOOD GLUCOSE DECREASED [None]
  - PULMONARY EMBOLISM [None]
